FAERS Safety Report 8908679 (Version 1)
Quarter: 2012Q4

REPORT INFORMATION
  Report Type: 
  Country: US (occurrence: US)
  Receive Date: 20121114
  Receipt Date: 20121114
  Transmission Date: 20130627
  Serious: No
  Sender: FDA-Public Use
  Company Number: US-PFIZER INC-2012283681

PATIENT
  Age: 63 Year
  Sex: Male
  Weight: 90.7 kg

DRUGS (6)
  1. LYRICA [Suspect]
     Indication: PAIN OF LOWER EXTREMITIES
     Dosage: 150 mg, 3x/day
     Dates: start: 2011, end: 20121015
  2. LYRICA [Suspect]
     Dosage: 150 mg, 3x/day
     Dates: start: 20121029
  3. LISINOPRIL [Concomitant]
     Indication: BLOOD PRESSURE HIGH
     Dosage: 2.5 mg, daily
  4. METFORMIN [Concomitant]
     Indication: DIABETES
     Dosage: 50 mg, 2x/day
  5. GLUCOTROL [Concomitant]
     Indication: DIABETES
     Dosage: 2 DF, 2x/day
  6. INSULIN [Concomitant]
     Indication: DIABETES
     Dosage: 75 mg, daily

REACTIONS (1)
  - Pain in extremity [Not Recovered/Not Resolved]
